FAERS Safety Report 5599168-3 (Version None)
Quarter: 2008Q1

REPORT INFORMATION
  Report Type: 
  Country: None (occurrence: None)
  Receive Date: 20080117
  Receipt Date: 20080103
  Transmission Date: 20080703
  Serious: Yes (Other)
  Sender: FDA-Public Use
  Company Number: 2008SP000021

PATIENT
  Age: 19 Year
  Sex: Male
  Weight: 50.3493 kg

DRUGS (5)
  1. XOPENEX [Suspect]
     Indication: DYSPNOEA
     Dosage: 0.63 MG/3ML; INHALATION
     Route: 055
     Dates: start: 20061201, end: 20071201
  2. XOPENEX HFA [Suspect]
     Indication: DYSPNOEA
     Dosage: 45 UG; TID; INHALATION
     Route: 055
     Dates: start: 20071201, end: 20071201
  3. FELBATOL [Concomitant]
  4. ACETAZOLAMIDE [Concomitant]
  5. PRIMIDONE [Concomitant]

REACTIONS (9)
  - ABASIA [None]
  - ANTICONVULSANT DRUG LEVEL INCREASED [None]
  - CONDITION AGGRAVATED [None]
  - DROOLING [None]
  - DYSPHAGIA [None]
  - GRAND MAL CONVULSION [None]
  - HEMIPARESIS [None]
  - SOMNOLENCE [None]
  - TREMOR [None]
